FAERS Safety Report 9288691 (Version 1)
Quarter: 2013Q2

REPORT INFORMATION
  Report Type: Spontaneous
  Country: US (occurrence: None)
  Receive Date: 20130513
  Receipt Date: 20130513
  Transmission Date: 20140414
  Serious: No
  Sender: FDA-Public Use
  Company Number: None

PATIENT
  Age: 37 Year
  Sex: Male
  Weight: 102.3 kg

DRUGS (1)
  1. TRAZODONE [Suspect]
     Indication: INSOMNIA
     Route: 048
     Dates: start: 20121212, end: 20130214

REACTIONS (1)
  - Priapism [None]
